FAERS Safety Report 5489377-6 (Version None)
Quarter: 2007Q4

REPORT INFORMATION
  Report Type: 
  Country: None (occurrence: None)
  Receive Date: 20071016
  Receipt Date: 20071016
  Transmission Date: 20080405
  Serious: Yes (Life-Threatening)
  Sender: FDA-Public Use
  Company Number: None

PATIENT
  Sex: Female
  Weight: 115.6672 kg

DRUGS (1)
  1. WARFARIN SODIUM [Suspect]
     Indication: ANTIPHOSPHOLIPID SYNDROME
     Dosage: 10 MG DAILY

REACTIONS (1)
  - COAGULATION TEST ABNORMAL [None]
